FAERS Safety Report 8977568 (Version 3)
Quarter: 2013Q1

REPORT INFORMATION
  Report Type: Spontaneous
  Country: US (occurrence: US)
  Receive Date: 20121220
  Receipt Date: 20130213
  Transmission Date: 20140127
  Serious: Yes (Hospitalization)
  Sender: FDA-Public Use
  Company Number: US-GLAXOSMITHKLINE-A0843495A

PATIENT
  Age: 54 Year
  Sex: Female

DRUGS (4)
  1. LAMICTAL [Suspect]
     Indication: CONVULSION
     Dosage: 700MG PER DAY
     Route: 048
     Dates: start: 2000
  2. CARBATROL [Concomitant]
  3. ZOLOFT [Concomitant]
  4. ACCUPRIL [Concomitant]

REACTIONS (2)
  - Hip arthroplasty [Unknown]
  - Dizziness [Unknown]
